FAERS Safety Report 7912987-0 (Version None)
Quarter: 2011Q4

REPORT INFORMATION
  Report Type: 
  Country: None (occurrence: None)
  Receive Date: 20111114
  Receipt Date: 20111108
  Transmission Date: 20120403
  Serious: Yes (Death)
  Sender: FDA-Public Use
  Company Number: GB-BRISTOL-MYERS SQUIBB COMPANY-16221889

PATIENT
  Sex: Male

DRUGS (12)
  1. DASATINIB [Suspect]
     Indication: NON-SMALL CELL LUNG CANCER
     Dosage: 20MG ALSO GIVEN, 1 TAB 1HR BEFORE OR 2 HRS AFTER MEALS
     Route: 048
     Dates: start: 20110618, end: 20111105
  2. CALCIUM [Concomitant]
     Dosage: 1DF = 600 TABS
     Route: 048
  3. ONDANSETRON [Concomitant]
     Indication: VOMITING
     Route: 048
  4. ERLOTINIB HYDROCHLORIDE [Suspect]
     Indication: NON-SMALL CELL LUNG CANCER
     Route: 048
     Dates: start: 20110618, end: 20111105
  5. CLINDAMYCIN HCL [Concomitant]
     Indication: RASH
     Dosage: 1DF = 1 CREAM
  6. VESICARE [Concomitant]
     Route: 048
  7. ASPIRIN [Concomitant]
  8. ENABLEX [Concomitant]
     Route: 048
  9. IMODIUM [Concomitant]
     Indication: DIARRHOEA
     Route: 048
  10. ONDANSETRON [Concomitant]
     Indication: NAUSEA
     Route: 048
  11. PRAVASTATIN [Concomitant]
     Indication: BLOOD CHOLESTEROL
     Dosage: 1 TAB
     Route: 048
  12. MULTI-VITAMIN [Concomitant]
     Indication: SUPPLEMENTATION THERAPY
     Dosage: 1DF = 1 TAB
     Route: 048

REACTIONS (1)
  - DEATH [None]
